FAERS Safety Report 5574850-2 (Version None)
Quarter: 2007Q4

REPORT INFORMATION
  Report Type: 
  Country: None (occurrence: None)
  Receive Date: 20071227
  Receipt Date: 20071226
  Transmission Date: 20080405
  Serious: Yes (Other)
  Sender: FDA-Public Use
  Company Number: SE-BRISTOL-MYERS SQUIBB COMPANY-14024277

PATIENT
  Age: 33 Year
  Sex: Male

DRUGS (3)
  1. CYCLOPHOSPHAMIDE [Suspect]
     Indication: MULTIFOCAL MOTOR NEUROPATHY
     Dosage: IN JUN-2005,3200 MG/DAY, GIVEN INTRAVENOUSLY. IN JUL-2005, 4950 MG/DAY, GIVEN FOR 4 DAYS.
     Dates: start: 20050601
  2. ANTITHYMOCYTE GLOBULIN [Suspect]
     Indication: MULTIFOCAL MOTOR NEUROPATHY
  3. GRANULOCYTE CSF [Concomitant]
     Dosage: 1 DOSAGE FORM - 5 MICROGRAM/KG/DAY
     Route: 058
     Dates: start: 20050601

REACTIONS (6)
  - DYSARTHRIA [None]
  - MUSCULAR WEAKNESS [None]
  - NEUTROPENIA [None]
  - PARESIS [None]
  - PYREXIA [None]
  - RESPIRATORY FAILURE [None]
